FAERS Safety Report 9466023 (Version 1)
Quarter: 2013Q3

REPORT INFORMATION
  Report Type: Spontaneous
  Country: US (occurrence: None)
  Receive Date: 20130816
  Receipt Date: 20130816
  Transmission Date: 20140515
  Serious: Yes (Death)
  Sender: FDA-Public Use
  Company Number: None

PATIENT
  Age: 56 Year
  Sex: Male

DRUGS (1)
  1. FLUPHENAZINE [Suspect]
     Indication: SCHIZOPHRENIA
     Dosage: 2 MG AT BEDTIME ORAL
     Route: 048

REACTIONS (8)
  - Heat stroke [None]
  - Neuroleptic malignant syndrome [None]
  - Multi-organ failure [None]
  - Renal failure acute [None]
  - Ischaemic hepatitis [None]
  - Disseminated intravascular coagulation [None]
  - Acute respiratory distress syndrome [None]
  - Sepsis [None]
